FAERS Safety Report 8101714-2 (Version None)
Quarter: 2012Q1

REPORT INFORMATION
  Report Type: 
  Country: None (occurrence: None)
  Receive Date: 20120131
  Receipt Date: 20120124
  Transmission Date: 20120608
  Serious: Yes (Other)
  Sender: FDA-Public Use
  Company Number: CA-ASTRAZENECA-2012SE01477

PATIENT
  Age: 55 Year
  Sex: Male

DRUGS (3)
  1. FLUTICASONE FUROATE [Concomitant]
     Indication: NASAL SEPTUM DEVIATION
  2. SYMBICORT [Suspect]
     Indication: ASTHMA
     Dosage: 200 MCG, 2 PUFFS BID
     Route: 055
     Dates: start: 20070901
  3. NEXIUM [Concomitant]
     Indication: GASTROOESOPHAGEAL REFLUX DISEASE
     Route: 048

REACTIONS (4)
  - DYSPNOEA [None]
  - DRUG INEFFECTIVE [None]
  - PULMONARY CONGESTION [None]
  - ASTHMA [None]
